FAERS Safety Report 18963461 (Version 1)
Quarter: 2021Q1

REPORT INFORMATION
  Report Type: Spontaneous
  Country: US (occurrence: US)
  Receive Date: 20210303
  Receipt Date: 20210303
  Transmission Date: 20210420
  Serious: Yes (Other)
  Sender: FDA-Public Use
  Company Number: US-MYLANLABS-2021M1013042

PATIENT
  Age: 3 Week
  Sex: Female

DRUGS (6)
  1. OMEPRAZOLE. [Suspect]
     Active Substance: OMEPRAZOLE
     Indication: DRUG THERAPY
     Dosage: UNK
     Route: 064
  2. AZATHIOPRINE. [Suspect]
     Active Substance: AZATHIOPRINE
     Indication: MYASTHENIA GRAVIS
     Dosage: 100 MILLIGRAM, QD
     Route: 064
  3. OMEPRAZOLE. [Suspect]
     Active Substance: OMEPRAZOLE
     Dosage: UNK
     Route: 063
  4. PREDNISONE. [Suspect]
     Active Substance: PREDNISONE
     Indication: MYASTHENIA GRAVIS
     Dosage: 10 MILLIGRAM, QD
     Route: 064
  5. PREDNISONE. [Suspect]
     Active Substance: PREDNISONE
     Dosage: 10 MILLIGRAM, QD
     Route: 063
  6. AZATHIOPRINE. [Suspect]
     Active Substance: AZATHIOPRINE
     Dosage: 100 MILLIGRAM, QD
     Route: 063

REACTIONS (7)
  - Maternal exposure during breast feeding [Unknown]
  - Immunosuppression [Recovering/Resolving]
  - Platelet count decreased [Recovering/Resolving]
  - Neutropenia [Recovering/Resolving]
  - Lymphopenia [Recovering/Resolving]
  - Anaemia [Recovering/Resolving]
  - Foetal exposure during pregnancy [Unknown]
